FAERS Safety Report 12428169 (Version 1)
Quarter: 2016Q2

REPORT INFORMATION
  Report Type: Spontaneous
  Country: DE (occurrence: DE)
  Receive Date: 20160602
  Receipt Date: 20160602
  Transmission Date: 20160815
  Serious: Yes (Hospitalization)
  Sender: FDA-Public Use
  Company Number: DE-IPSEN BIOPHARMACEUTICALS, INC.-2016-03397

PATIENT
  Age: 11 Year
  Sex: Male
  Weight: 27 kg

DRUGS (2)
  1. INCRELEX [Suspect]
     Active Substance: MECASERMIN
     Indication: PRIMARY INSULIN LIKE GROWTH FACTOR-1 DEFICIENCY
     Route: 058
     Dates: start: 20120425, end: 2016
  2. INCRELEX [Suspect]
     Active Substance: MECASERMIN
     Indication: BODY HEIGHT BELOW NORMAL
     Route: 058
     Dates: start: 2016

REACTIONS (3)
  - Ureteric dilatation [Recovered/Resolved]
  - Nephrolithiasis [Recovered/Resolved]
  - Calculus urinary [Unknown]

NARRATIVE: CASE EVENT DATE: 201604
